FAERS Safety Report 6289401-7 (Version None)
Quarter: 2009Q3

REPORT INFORMATION
  Report Type: 
  Country: None (occurrence: None)
  Receive Date: 20090730
  Receipt Date: 20090722
  Transmission Date: 20100115
  Serious: Yes (Hospitalization, Other)
  Sender: FDA-Public Use
  Company Number: US-ELI_LILLY_AND_COMPANY-US200907005100

PATIENT
  Sex: Male
  Weight: 105.22 kg

DRUGS (10)
  1. BYETTA [Suspect]
     Indication: TYPE 2 DIABETES MELLITUS
     Dosage: 5 UG, 2/D
     Route: 058
     Dates: start: 20060101, end: 20060101
  2. BYETTA [Suspect]
     Dosage: 10 UG, 2/D
     Route: 058
     Dates: start: 20060101, end: 20080101
  3. METFORMIN [Concomitant]
     Indication: TYPE 2 DIABETES MELLITUS
     Dosage: UNK, UNKNOWN
  4. GLIMEPIRIDE [Concomitant]
     Indication: TYPE 2 DIABETES MELLITUS
     Dosage: UNK, UNKNOWN
  5. TORSEMIDE [Concomitant]
     Indication: DIURETIC THERAPY
     Dosage: UNK, UNKNOWN
  6. DOXAZOSIN MESYLATE [Concomitant]
     Dosage: UNK, UNKNOWN
  7. NEXIUM [Concomitant]
     Dosage: UNK, UNKNOWN
  8. TRICOR [Concomitant]
     Indication: BLOOD CHOLESTEROL INCREASED
     Dosage: UNK, UNKNOWN
  9. SIMVASTATIN [Concomitant]
     Dosage: UNK, UNKNOWN
  10. AVANDIA [Concomitant]
     Dosage: UNK, UNKNOWN
     Dates: end: 20080101

REACTIONS (7)
  - BLOOD GLUCOSE DECREASED [None]
  - CARDIAC FAILURE CONGESTIVE [None]
  - DIZZINESS [None]
  - DYSPNOEA [None]
  - GLYCOSYLATED HAEMOGLOBIN INCREASED [None]
  - ULTRASOUND SCAN [None]
  - WEIGHT DECREASED [None]
